FAERS Safety Report 7119148-6 (Version None)
Quarter: 2010Q4

REPORT INFORMATION
  Report Type: 
  Country: None (occurrence: None)
  Receive Date: 20101123
  Receipt Date: 20100831
  Transmission Date: 20110411
  Serious: No
  Sender: FDA-Public Use
  Company Number: US-MYLANLABS-2010S1016248

PATIENT
  Age: 56 Year
  Sex: Female

DRUGS (3)
  1. AMLODIPINE BESYLATE [Suspect]
     Indication: BLOOD PRESSURE INCREASED
     Route: 048
     Dates: end: 20100828
  2. ATENOLOL [Concomitant]
     Indication: BLOOD PRESSURE INCREASED
  3. DIOVAN [Concomitant]
     Indication: BLOOD PRESSURE INCREASED

REACTIONS (1)
  - GASTRIC DISORDER [None]
